FAERS Safety Report 11024112 (Version 1)
Quarter: 2015Q2

REPORT INFORMATION
  Report Type: Spontaneous
  Country: AU (occurrence: AU)
  Receive Date: 20150413
  Receipt Date: 20150413
  Transmission Date: 20150821
  Serious: Yes (Other)
  Sender: FDA-Public Use
  Company Number: PHHY2015AU038629

PATIENT
  Age: 48 Year
  Sex: Female

DRUGS (2)
  1. OCTREOTIDE [Suspect]
     Active Substance: OCTREOTIDE
     Indication: PANCREATIC NEUROENDOCRINE TUMOUR METASTATIC
     Dosage: UNK UNK, QMO (EVERY MONTH)
     Route: 065
  2. OCTREOTIDE [Suspect]
     Active Substance: OCTREOTIDE
     Dosage: UNK, EVERY THREE WEEKS
     Route: 065

REACTIONS (5)
  - Hepatic neoplasm [Unknown]
  - Renal neoplasm [Unknown]
  - Vascular neoplasm [Unknown]
  - Drug effect decreased [Unknown]
  - Injection site pain [Unknown]
